FAERS Safety Report 5963250-9 (Version None)
Quarter: 2008Q4

REPORT INFORMATION
  Report Type: 
  Country: None (occurrence: None)
  Receive Date: 20081124
  Receipt Date: 20081115
  Transmission Date: 20090506
  Serious: Yes (Disabling)
  Sender: FDA-Public Use
  Company Number: GB-ROCHE-597425

PATIENT
  Sex: Female
  Weight: 80 kg

DRUGS (4)
  1. ORLISTAT [Suspect]
     Indication: OBESITY
     Dosage: DRUG WITHDRAWN.
     Route: 048
     Dates: start: 20080807, end: 20080923
  2. CETIRIZINE HCL [Concomitant]
     Indication: MULTIPLE ALLERGIES
     Dates: start: 20050701
  3. DULOXETINE [Concomitant]
     Dates: start: 20070401, end: 20080901
  4. RAMIPRIL [Concomitant]
     Indication: HYPERTENSION
     Dates: start: 20080701

REACTIONS (2)
  - BLEPHARITIS [None]
  - KERATITIS [None]
